FAERS Safety Report 8320518-9 (Version None)
Quarter: 2012Q2

REPORT INFORMATION
  Report Type: 
  Country: None (occurrence: None)
  Receive Date: 20120427
  Receipt Date: 20120427
  Transmission Date: 20120825
  Serious: Yes (Hospitalization, Other)
  Sender: FDA-Public Use
  Company Number: None

PATIENT
  Sex: Female
  Weight: 102.96 kg

DRUGS (4)
  1. CYMBALTA [Suspect]
     Indication: FIBROMYALGIA
     Dates: start: 20111101, end: 20120419
  2. CYMBALTA [Suspect]
     Indication: SYSTEMIC LUPUS ERYTHEMATOSUS
     Dates: start: 20111101, end: 20120419
  3. CYMBALTA [Suspect]
     Indication: ARTHRITIS
     Dates: start: 20111101, end: 20120419
  4. CYMBALTA [Suspect]
     Indication: DIABETES MELLITUS
     Dates: start: 20111101, end: 20120419

REACTIONS (9)
  - VOMITING [None]
  - DIARRHOEA [None]
  - EPISTAXIS [None]
  - POSTURE ABNORMAL [None]
  - CHILLS [None]
  - HOT FLUSH [None]
  - PAIN [None]
  - RETCHING [None]
  - PARAESTHESIA [None]
